FAERS Safety Report 18930194 (Version 1)
Quarter: 2021Q1

REPORT INFORMATION
  Report Type: Spontaneous
  Country: IL (occurrence: IL)
  Receive Date: 20210223
  Receipt Date: 20210223
  Transmission Date: 20210420
  Serious: Yes (Other)
  Sender: FDA-Public Use
  Company Number: IL-AMERICAN REGENT INC-2021000432

PATIENT
  Age: 53 Year
  Sex: Female

DRUGS (2)
  1. FERINJECT [Suspect]
     Active Substance: FERRIC CARBOXYMALTOSE
     Indication: ANAEMIA
     Dosage: 1000 MG
     Dates: start: 20210203, end: 20210203
  2. LANTON [Concomitant]
     Indication: DYSPEPSIA
     Dosage: UNK
     Route: 065

REACTIONS (17)
  - Diarrhoea haemorrhagic [Unknown]
  - Blister [Recovered/Resolved]
  - Pain in extremity [Unknown]
  - Constipation [Not Recovered/Not Resolved]
  - Unevaluable event [Unknown]
  - Muscle spasms [Not Recovered/Not Resolved]
  - Abdominal pain upper [Not Recovered/Not Resolved]
  - Back pain [Not Recovered/Not Resolved]
  - Pruritus [Unknown]
  - Condition aggravated [Unknown]
  - Abdominal pain [Not Recovered/Not Resolved]
  - Confusional state [Unknown]
  - Dizziness [Unknown]
  - Pyrexia [Not Recovered/Not Resolved]
  - Loss of personal independence in daily activities [Unknown]
  - Headache [Not Recovered/Not Resolved]
  - Nausea [Unknown]

NARRATIVE: CASE EVENT DATE: 202102
